FAERS Safety Report 6331618-7 (Version None)
Quarter: 2009Q3

REPORT INFORMATION
  Report Type: 
  Country: None (occurrence: None)
  Receive Date: 20090827
  Receipt Date: 20090820
  Transmission Date: 20100115
  Serious: Yes (Other)
  Sender: FDA-Public Use
  Company Number: PHHY2009CA35175

PATIENT
  Sex: Female

DRUGS (1)
  1. DIOVAN HCT [Suspect]
     Dosage: 1 DF (160/12.5MG) DAILY
     Route: 048
     Dates: start: 20080101

REACTIONS (2)
  - BREAST CANCER [None]
  - MASTECTOMY [None]
